FAERS Safety Report 11203619 (Version 1)
Quarter: 2015Q2

REPORT INFORMATION
  Report Type: Spontaneous
  Country: US (occurrence: US)
  Receive Date: 20150619
  Receipt Date: 20150619
  Transmission Date: 20150821
  Serious: Yes (Other)
  Sender: FDA-Public Use
  Company Number: US-BRISTOL-MYERS SQUIBB COMPANY-BMS-2015-038104

PATIENT
  Sex: Male

DRUGS (1)
  1. ABILIFY [Suspect]
     Active Substance: ARIPIPRAZOLE
     Indication: BIPOLAR DISORDER
     Dosage: 5 MG, QD
     Route: 065
     Dates: start: 201505

REACTIONS (10)
  - Mania [Unknown]
  - Agitation [Unknown]
  - Hypoaesthesia [Unknown]
  - Anxiety [Unknown]
  - Somnolence [Unknown]
  - Tremor [Unknown]
  - Panic attack [Unknown]
  - Hyperhidrosis [Unknown]
  - Palpitations [Unknown]
  - Nervousness [Unknown]
